FAERS Safety Report 5850122-3 (Version None)
Quarter: 2008Q3

REPORT INFORMATION
  Report Type: 
  Country: None (occurrence: None)
  Receive Date: 20080819
  Receipt Date: 20080804
  Transmission Date: 20090109
  Serious: No
  Sender: FDA-Public Use
  Company Number: US-BOEHRINGER INGELHEIM GMBH, GERMANY-2008-BP-12215BP

PATIENT
  Age: 81 Year
  Sex: Male

DRUGS (5)
  1. FLOMAX [Suspect]
     Indication: BENIGN PROSTATIC HYPERPLASIA
     Route: 048
     Dates: start: 20040101
  2. PULMICORT-100 [Concomitant]
     Indication: ASTHMA
  3. LISINOPRIL [Concomitant]
     Indication: HYPERTENSION
  4. DILTIAZEM HCL [Concomitant]
     Indication: HYPERTENSION
  5. PHYTOSTEROL [Concomitant]
     Indication: BLOOD CHOLESTEROL INCREASED

REACTIONS (1)
  - NOCTURIA [None]
